FAERS Safety Report 9408404 (Version 2)
Quarter: 2013Q3

REPORT INFORMATION
  Report Type: Spontaneous
  Country: US (occurrence: US)
  Receive Date: 20130718
  Receipt Date: 20130826
  Transmission Date: 20140515
  Serious: Yes (Hospitalization, Other)
  Sender: FDA-Public Use
  Company Number: US-VERTEX PHARMACEUTICAL INC.-AE-2012-002088

PATIENT
  Age: 25 Year
  Sex: Female
  Weight: 52 kg

DRUGS (17)
  1. KALYDECO [Suspect]
     Indication: CYSTIC FIBROSIS
     Dosage: 150 MG, BID
     Route: 048
     Dates: start: 20120209, end: 20120211
  2. KALYDECO [Suspect]
     Dosage: 150 UNK, UNK
     Route: 048
     Dates: start: 201204
  3. CEFOXITIN [Concomitant]
     Indication: CYSTIC FIBROSIS
  4. AZITHROMYCIN [Concomitant]
  5. PULMOZYME [Concomitant]
  6. EFFEXOR [Concomitant]
  7. CLONOPIN [Concomitant]
  8. VORICONAZOLE [Concomitant]
  9. ETHAMBUTOL [Concomitant]
  10. AZTREONAM [Concomitant]
  11. CEPHALOSPORIN C [Concomitant]
  12. PENICILLIN [Concomitant]
  13. CLARITHROMYCIN [Concomitant]
  14. GENTAMICIN [Concomitant]
  15. TOBRAMYCIN [Concomitant]
  16. AMIKACIN [Concomitant]
  17. ZENPEP [Concomitant]

REACTIONS (6)
  - Anaphylactic reaction [Recovered/Resolved]
  - Endometriosis [Recovered/Resolved]
  - Lip swelling [Unknown]
  - Dyspnoea [Unknown]
  - Chronic sinusitis [Recovered/Resolved]
  - Drug ineffective [Recovered/Resolved]
